FAERS Safety Report 5982566-3 (Version None)
Quarter: 2008Q4

REPORT INFORMATION
  Report Type: 
  Country: None (occurrence: None)
  Receive Date: 20081208
  Receipt Date: 20081127
  Transmission Date: 20090506
  Serious: Yes (Other)
  Sender: FDA-Public Use
  Company Number: PHNU2007DE03769

PATIENT
  Sex: Female
  Weight: 54 kg

DRUGS (6)
  1. ZOMETA [Suspect]
     Indication: OSTEOPOROSIS PROPHYLAXIS
     Dosage: 4 MG, QMO
     Route: 042
     Dates: start: 20070124
  2. TARGIN [Concomitant]
     Dosage: 10/5MG, QD2SDO
     Dates: start: 20071205
  3. LOESFERRON [Concomitant]
     Dates: start: 20071205
  4. IBUPROFEN TABLETS [Concomitant]
     Dosage: 600 MG, QD2SDO
     Dates: start: 20070221, end: 20080116
  5. CALCIUM D3 ^STADA^ [Concomitant]
     Dates: start: 20070124
  6. OBSIDAN [Concomitant]
     Indication: HYPERTENSION
     Dosage: 25 MG, QD
     Dates: start: 19750101

REACTIONS (11)
  - ANAEMIA [None]
  - BONE PAIN [None]
  - CANDIDIASIS [None]
  - FOREARM FRACTURE [None]
  - GASTRITIS [None]
  - LUMBAR VERTEBRAL FRACTURE [None]
  - OSTEOPOROSIS [None]
  - OSTEOPOROTIC FRACTURE [None]
  - THORACIC VERTEBRAL FRACTURE [None]
  - VULVITIS [None]
  - WEIGHT DECREASED [None]
